FAERS Safety Report 12949947 (Version 1)
Quarter: 2016Q4

REPORT INFORMATION
  Report Type: Spontaneous
  Country: US (occurrence: US)
  Receive Date: 20161116
  Receipt Date: 20161116
  Transmission Date: 20170207
  Serious: Yes (Hospitalization)
  Sender: FDA-Public Use
  Company Number: None

PATIENT
  Age: 74 Year
  Sex: Male
  Weight: 113.85 kg

DRUGS (15)
  1. IOPHEN C-NR [Concomitant]
  2. FINASTERIDE. [Concomitant]
     Active Substance: FINASTERIDE
  3. ALLOPURINOL. [Concomitant]
     Active Substance: ALLOPURINOL
  4. VITAMIN D3 [Concomitant]
     Active Substance: CHOLECALCIFEROL
  5. RUXOLITINIB [Suspect]
     Active Substance: RUXOLITINIB
     Indication: CHRONIC MYELOID LEUKAEMIA
     Route: 048
     Dates: start: 20160408
  6. GLUCOSAMINE CHONDROITIN [Concomitant]
     Active Substance: CHONDROITIN SULFATE (BOVINE)\GLUCOSAMINE HYDROCHLORIDE
  7. INSULIN LISPRO [Concomitant]
     Active Substance: INSULIN LISPRO
  8. SIMVASTATIN. [Concomitant]
     Active Substance: SIMVASTATIN
  9. VITAMIN C [Concomitant]
     Active Substance: ASCORBIC ACID
  10. INSULIN DETEMIR [Concomitant]
     Active Substance: INSULIN DETEMIR
  11. LORATIDINE [Concomitant]
     Active Substance: LORATADINE
  12. VALSARTAN. [Concomitant]
     Active Substance: VALSARTAN
  13. TAMSULOSIN [Concomitant]
     Active Substance: TAMSULOSIN
  14. GLUCOPHAGE [Concomitant]
     Active Substance: METFORMIN HYDROCHLORIDE
  15. OXYCODONE [Concomitant]
     Active Substance: OXYCODONE

REACTIONS (9)
  - Platelet count decreased [None]
  - Therapy change [None]
  - Respiratory failure [None]
  - Splenomegaly [None]
  - Fluid overload [None]
  - Hepatitis [None]
  - Pneumonia [None]
  - Disease progression [None]
  - Cellulitis [None]

NARRATIVE: CASE EVENT DATE: 20161017
